FAERS Safety Report 16439768 (Version 3)
Quarter: 2019Q3

REPORT INFORMATION
  Report Type: Report from Study
  Country: GB (occurrence: GB)
  Receive Date: 20190617
  Receipt Date: 20190709
  Transmission Date: 20191004
  Serious: Yes (Hospitalization, Other)
  Sender: FDA-Public Use
  Company Number: GB-EMD SERONO-9091509

PATIENT
  Age: 19 Year
  Sex: Female

DRUGS (1)
  1. MAVENCLAD [Suspect]
     Active Substance: CLADRIBINE
     Indication: MULTIPLE SCLEROSIS
     Dosage: FIRST WEEK THERAPY: TWO TABLETS ON DAYS 1 TO 3 AND ONE TABLET ON DAYS 4 TO 5
     Route: 048
     Dates: start: 20190511

REACTIONS (12)
  - Multiple sclerosis relapse [Recovered/Resolved]
  - Limb discomfort [Unknown]
  - Headache [Unknown]
  - Malaise [Unknown]
  - Peripheral coldness [Unknown]
  - Alopecia [Unknown]
  - Lower respiratory tract infection [Recovered/Resolved]
  - Feeling cold [Unknown]
  - Abdominal pain upper [Unknown]
  - Feeling abnormal [Unknown]
  - Eosinophil count increased [Unknown]
  - Lymphocyte count decreased [Unknown]

NARRATIVE: CASE EVENT DATE: 201905
